FAERS Safety Report 13092554 (Version 1)
Quarter: 2017Q1

REPORT INFORMATION
  Report Type: Spontaneous
  Country: US (occurrence: US)
  Receive Date: 20170105
  Receipt Date: 20170105
  Transmission Date: 20170428
  Serious: Yes (Disabling, Other)
  Sender: FDA-Public Use
  Company Number: None

PATIENT
  Age: 49 Year
  Sex: Male
  Weight: 87.75 kg

DRUGS (6)
  1. OTEZLA [Concomitant]
     Active Substance: APREMILAST
  2. VITAMIN D [Concomitant]
     Active Substance: CHOLECALCIFEROL
  3. METHOTREXATE. [Concomitant]
     Active Substance: METHOTREXATE
  4. BETAMETHASONE DP [Concomitant]
  5. STELARA [Suspect]
     Active Substance: USTEKINUMAB
     Indication: PSORIASIS
     Route: 030
     Dates: start: 20130305, end: 20141114
  6. FOLIC ACID. [Concomitant]
     Active Substance: FOLIC ACID

REACTIONS (4)
  - Application site reaction [None]
  - Carcinoid tumour of the gastrointestinal tract [None]
  - Melanocytic naevus [None]
  - Malignant melanoma [None]

NARRATIVE: CASE EVENT DATE: 20141001
